FAERS Safety Report 13381320 (Version 1)
Quarter: 2017Q1

REPORT INFORMATION
  Report Type: Spontaneous
  Country: US (occurrence: US)
  Receive Date: 20170328
  Receipt Date: 20170328
  Transmission Date: 20170429
  Serious: Yes (Hospitalization)
  Sender: FDA-Public Use
  Company Number: None

PATIENT
  Age: 72 Year
  Sex: Female
  Weight: 118 kg

DRUGS (1)
  1. 5-AMINOLEVULINIC ACID 10 OR 20MG/KG DUSA PHARMACEUTICALS [Suspect]
     Active Substance: AMINOLEVULINIC ACID
     Indication: GLIOBLASTOMA
     Dosage: 4720 MG 2 HOURS PESURGERY ORAL
     Route: 048
     Dates: start: 20170221

REACTIONS (3)
  - Obstructive airways disorder [None]
  - Lung infiltration [None]
  - Partial seizures [None]

NARRATIVE: CASE EVENT DATE: 20170224
